FAERS Safety Report 5660027-9 (Version None)
Quarter: 2008Q1

REPORT INFORMATION
  Report Type: 
  Country: None (occurrence: None)
  Receive Date: 20080311
  Receipt Date: 20080305
  Transmission Date: 20080703
  Serious: Yes (Other)
  Sender: FDA-Public Use
  Company Number: JP-AVENTIS-200810676JP

PATIENT
  Age: 17 Year
  Sex: Female

DRUGS (3)
  1. AMARYL [Suspect]
     Dosage: DOSE: 2 TABLETS, IN THE MORNING AND 1 TABLET IN THE EVENING
     Route: 048
     Dates: start: 20060401
  2. BASEN [Concomitant]
  3. HORMONES AND RELATED AGENTS [Concomitant]

REACTIONS (1)
  - SUDDEN HEARING LOSS [None]
